FAERS Safety Report 7245224-3 (Version None)
Quarter: 2011Q1

REPORT INFORMATION
  Report Type: 
  Country: None (occurrence: None)
  Receive Date: 20110126
  Receipt Date: 20100701
  Transmission Date: 20110831
  Serious: No
  Sender: FDA-Public Use
  Company Number: US-MYLANLABS-2010S1011956

PATIENT
  Sex: Female
  Weight: 108.41 kg

DRUGS (8)
  1. NIASPAN [Suspect]
     Dates: start: 20100301
  2. ESCITALOPRAM [Concomitant]
     Route: 048
  3. ERGOCALCIFEROL [Concomitant]
     Route: 048
  4. LOVASTATIN [Suspect]
     Dates: start: 20100419
  5. LOVASTATIN [Suspect]
     Dates: start: 20100518
  6. INSULIN DETEMIR [Concomitant]
  7. HYDROCHLOROTHIAZIDE W/OLMESARTAN MEDOXOMIL [Concomitant]
     Route: 048
  8. ACETYLSALICYLIC ACID SRT [Concomitant]

REACTIONS (7)
  - HOT FLUSH [None]
  - SWELLING FACE [None]
  - GENERALISED OEDEMA [None]
  - PRURITUS [None]
  - PRURITUS GENERALISED [None]
  - VULVOVAGINAL PRURITUS [None]
  - OEDEMA PERIPHERAL [None]
